FAERS Safety Report 19609592 (Version 2)
Quarter: 2021Q3

REPORT INFORMATION
  Report Type: Spontaneous
  Country: US (occurrence: US)
  Receive Date: 20210726
  Receipt Date: 20210812
  Transmission Date: 20211014
  Serious: No
  Sender: FDA-Public Use
  Company Number: US-ORGANON-O2107USA001233

PATIENT
  Sex: Female

DRUGS (1)
  1. ETONOGESTREL (+) ETHINYL ESTRADIOL [Suspect]
     Active Substance: ETHINYL ESTRADIOL\ETONOGESTREL
     Dosage: 1 RING (STRENGTH WAS REPORTED AS 0.12 MG/0.015 MG)
     Route: 067

REACTIONS (2)
  - Device expulsion [Not Recovered/Not Resolved]
  - Product quality issue [Unknown]
